FAERS Safety Report 6855679-1 (Version None)
Quarter: 2010Q3

REPORT INFORMATION
  Report Type: 
  Country: None (occurrence: None)
  Receive Date: 20100719
  Receipt Date: 20090930
  Transmission Date: 20110219
  Serious: No
  Sender: FDA-Public Use
  Company Number: US-KINGPHARMUSA00001-K200901210

PATIENT
  Age: 48 Year
  Sex: Female

DRUGS (4)
  1. LEVOXYL [Suspect]
     Indication: HYPOTHYROIDISM
     Dosage: 150 MCG, QHS
     Route: 048
     Dates: start: 19990101, end: 20090601
  2. LEVOXYL [Suspect]
     Dosage: 137 MCG, QHS
     Route: 048
     Dates: start: 20090601, end: 20090927
  3. LEVOXYL [Suspect]
     Dosage: 125 MCG, QHS
     Route: 048
     Dates: start: 20090928
  4. AVIANE-28 [Concomitant]
     Indication: CONTRACEPTION
     Dosage: UNK
     Route: 048
     Dates: start: 20090301

REACTIONS (1)
  - BLOOD THYROID STIMULATING HORMONE DECREASED [None]
